FAERS Safety Report 5990746-6 (Version None)
Quarter: 2008Q4

REPORT INFORMATION
  Report Type: 
  Country: None (occurrence: None)
  Receive Date: 20081211
  Receipt Date: 20081201
  Transmission Date: 20090506
  Serious: Yes (Hospitalization)
  Sender: FDA-Public Use
  Company Number: US-WATSON-2008-07047

PATIENT
  Sex: Male

DRUGS (4)
  1. FENTANYL-100 [Suspect]
     Indication: PAIN
     Dosage: 1 PATCH, Q 72 HOURS
     Route: 062
     Dates: start: 20081112, end: 20081101
  2. FENTANYL-100 [Suspect]
     Dosage: 1 PATCH, Q 72 HOURS
     Route: 062
     Dates: start: 20081112, end: 20081101
  3. OXYCODONE HCL [Concomitant]
     Indication: BREAKTHROUGH PAIN
     Dosage: 10 MG, Q3H, PRN
     Route: 048
     Dates: start: 20070101
  4. INSULIN [Concomitant]
     Indication: DIABETES MELLITUS
     Dosage: UNK
     Route: 065
     Dates: start: 20081101

REACTIONS (4)
  - DRUG INEFFECTIVE [None]
  - DRUG SCREEN NEGATIVE [None]
  - HALLUCINATION [None]
  - WITHDRAWAL SYNDROME [None]
